FAERS Safety Report 5780040-0 (Version None)
Quarter: 2008Q2

REPORT INFORMATION
  Report Type: 
  Country: None (occurrence: None)
  Receive Date: 20080620
  Receipt Date: 20080613
  Transmission Date: 20081010
  Serious: Yes (Other)
  Sender: FDA-Public Use
  Company Number: US-ROCHE-570560

PATIENT

DRUGS (7)
  1. PEGASYS [Suspect]
     Route: 065
  2. RIBAVIRIN [Suspect]
     Route: 065
  3. KALETRA [Concomitant]
     Dosage: STRENGTH REPORTED AS: 200 MG/ 50 MG
  4. KALETRA [Concomitant]
     Dosage: STRENGTH REPORTED AS: 200 MG/ 50 MG
  5. INVIRASE [Concomitant]
     Dosage: DOSAGE REPORTED AS: 2 TABLETS TWICE DAILY.
  6. SUSTIVA [Concomitant]
     Dosage: FREQUENCY REPORTED AS 1 AT BED TIME
  7. VIREAD [Concomitant]

REACTIONS (2)
  - ANAEMIA [None]
  - CONVULSION [None]
